FAERS Safety Report 8046604-9 (Version None)
Quarter: 2012Q1

REPORT INFORMATION
  Report Type: 
  Country: None (occurrence: None)
  Receive Date: 20120114
  Receipt Date: 20120104
  Transmission Date: 20120608
  Serious: No
  Sender: FDA-Public Use
  Company Number: ZA-AMGEN-ZAFSP2011069827

PATIENT
  Age: 66 Year
  Sex: Female
  Weight: 70 kg

DRUGS (3)
  1. ENBREL [Suspect]
     Indication: RHEUMATOID ARTHRITIS
     Dosage: 25 MG, 2X/WEEK
     Route: 058
     Dates: start: 20110922
  2. CELEBREX [Concomitant]
     Dosage: UNK
     Route: 048
     Dates: start: 20070101
  3. PERINDOPRIL [Concomitant]
     Dosage: 1 UNK, 1X/DAY(DAILY)
     Route: 048
     Dates: start: 20070101

REACTIONS (1)
  - DYSPHONIA [None]
